FAERS Safety Report 13172481 (Version 3)
Quarter: 2017Q1

REPORT INFORMATION
  Report Type: Spontaneous
  Country: NO (occurrence: NO)
  Receive Date: 20170201
  Receipt Date: 20170329
  Transmission Date: 20170428
  Serious: Yes (Other)
  Sender: FDA-Public Use
  Company Number: NO-TEVA-733201ACC

PATIENT
  Sex: Female

DRUGS (1)
  1. METHOTREXATE SODIUM. [Suspect]
     Active Substance: METHOTREXATE SODIUM
     Dosage: UNK

REACTIONS (8)
  - Accidental exposure to product [Unknown]
  - Nausea [Unknown]
  - Skin cancer [Unknown]
  - Immunosuppression [Unknown]
  - Dizziness [Unknown]
  - Deafness [Unknown]
  - Immune system disorder [Unknown]
  - Tinnitus [Unknown]
